FAERS Safety Report 5380963-0 (Version None)
Quarter: 2007Q3

REPORT INFORMATION
  Report Type: 
  Country: None (occurrence: None)
  Receive Date: 20070702
  Receipt Date: 20060731
  Transmission Date: 20080115
  Serious: Yes (Hospitalization)
  Sender: FDA-Public Use
  Company Number: SPV1-2006-00287

PATIENT
  Age: 68 Year
  Sex: Male

DRUGS (3)
  1. PENTASA [Suspect]
     Indication: COLITIS ULCERATIVE
     Dosage: 2 G DAILY, ORAL
     Route: 048
     Dates: start: 19850615
  2. PRAZEPAM [Suspect]
     Dosage: 10 MG DAILY, ORAL
     Route: 048
  3. NORSET [Suspect]
     Dosage: 30  MG DAILY PO
     Route: 048

REACTIONS (2)
  - NEUTROPENIA [None]
  - THROMBOCYTOPENIA [None]
